FAERS Safety Report 8045921-6 (Version None)
Quarter: 2012Q1

REPORT INFORMATION
  Report Type: 
  Country: None (occurrence: None)
  Receive Date: 20120113
  Receipt Date: 20111221
  Transmission Date: 20120608
  Serious: Yes (Hospitalization, Other)
  Sender: FDA-Public Use
  Company Number: JP-GLAXOSMITHKLINE-B0770904A

PATIENT
  Age: 44 Year
  Sex: Female

DRUGS (3)
  1. FLUNITRAZEPAM [Concomitant]
     Indication: INSOMNIA
     Dosage: 1.5MG PER DAY
     Route: 048
     Dates: start: 20111118, end: 20111220
  2. LAMICTAL [Suspect]
     Indication: BIPOLAR DISORDER
     Dosage: 25MG PER DAY
     Route: 048
     Dates: start: 20111118, end: 20111220
  3. FLUNITRAZEPAM [Concomitant]
     Dosage: 1MG PER DAY
     Route: 048
     Dates: start: 20111202, end: 20111220

REACTIONS (5)
  - LYMPHADENOPATHY [None]
  - APHTHOUS STOMATITIS [None]
  - ECZEMA [None]
  - RASH [None]
  - STEVENS-JOHNSON SYNDROME [None]
